FAERS Safety Report 6701128-3 (Version None)
Quarter: 2010Q2

REPORT INFORMATION
  Report Type: 
  Country: None (occurrence: None)
  Receive Date: 20100428
  Receipt Date: 20100428
  Transmission Date: 20101027
  Serious: Yes (Other)
  Sender: FDA-Public Use
  Company Number: None

PATIENT
  Sex: Male
  Weight: 76.6579 kg

DRUGS (1)
  1. ENBREL [Suspect]
     Indication: RHEUMATOID ARTHRITIS
     Dosage: 25 MG TWICE A WEEK SQ
     Route: 058
     Dates: start: 20060901, end: 20091018

REACTIONS (2)
  - HYPOAESTHESIA [None]
  - INJECTION SITE ANAESTHESIA [None]
